FAERS Safety Report 7254332-2 (Version None)
Quarter: 2011Q1

REPORT INFORMATION
  Report Type: 
  Country: None (occurrence: None)
  Receive Date: 20110129
  Receipt Date: 20100119
  Transmission Date: 20110831
  Serious: No
  Sender: FDA-Public Use
  Company Number: US-ABBOTT-10P-163-0621508-00

PATIENT
  Sex: Male

DRUGS (2)
  1. METHOTREXATE [Concomitant]
     Indication: PSORIASIS
     Dates: end: 20091201
  2. HUMIRA [Suspect]
     Indication: PSORIASIS
     Dates: start: 20091022

REACTIONS (1)
  - DRUG INEFFECTIVE [None]
